FAERS Safety Report 5816084-X (Version None)
Quarter: 2008Q3

REPORT INFORMATION
  Report Type: 
  Country: None (occurrence: None)
  Receive Date: 20080716
  Receipt Date: 20080716
  Transmission Date: 20090109
  Serious: Yes (Life-Threatening, Hospitalization)
  Sender: FDA-Public Use
  Company Number: None

PATIENT
  Sex: Male
  Weight: 106.4592 kg

DRUGS (6)
  1. PENTOSTATIN 10 MILLIGRAMS HOSPIRA [Suspect]
     Indication: NON-HODGKIN'S LYMPHOMA
     Dosage: 4.8 MILLIGRAMS  EVERY 21 DAYS  IV DRIP
     Route: 041
     Dates: start: 20080528, end: 20080528
  2. CYTOXAN [Suspect]
     Indication: NON-HODGKIN'S LYMPHOMA
     Dosage: 1400 MILLIGRAMS EVERY 21 DAYS IV DRIP
     Route: 041
     Dates: start: 20080528, end: 20080528
  3. DECADRON [Concomitant]
  4. ZOFRAN [Concomitant]
  5. BACTRIM DS [Concomitant]
  6. VALACYCLOVIR HCL [Concomitant]

REACTIONS (3)
  - RASH [None]
  - SINUSITIS [None]
  - SKIN EXFOLIATION [None]
